FAERS Safety Report 13840293 (Version 1)
Quarter: 2017Q3

REPORT INFORMATION
  Report Type: Spontaneous
  Country: US (occurrence: US)
  Receive Date: 20170807
  Receipt Date: 20170807
  Transmission Date: 20171127
  Serious: Yes (Death)
  Sender: FDA-Public Use
  Company Number: US-JUBILANT CADISTA PHARMACEUTICALS-2017JUB00264

PATIENT
  Age: 19 Year
  Sex: Male

DRUGS (1)
  1. BUPROPION. [Suspect]
     Active Substance: BUPROPION
     Route: 048

REACTIONS (4)
  - Status epilepticus [Fatal]
  - Renal failure [Fatal]
  - Brain oedema [Fatal]
  - Toxicity to various agents [Fatal]
